FAERS Safety Report 6463866-X (Version None)
Quarter: 2009Q4

REPORT INFORMATION
  Report Type: 
  Country: None (occurrence: None)
  Receive Date: 20091201
  Receipt Date: 20091123
  Transmission Date: 20100525
  Serious: Yes (Hospitalization)
  Sender: FDA-Public Use
  Company Number: FR-ROCHE-666687

PATIENT
  Sex: Female
  Weight: 80 kg

DRUGS (1)
  1. TAMIFLU [Suspect]
     Dosage: DOSE REPORTED AS: 75X2.
     Route: 065
     Dates: start: 20090908, end: 20090915

REACTIONS (3)
  - CARDIAC FAILURE [None]
  - MYOCARDIAL INFARCTION [None]
  - RENAL FAILURE [None]
